FAERS Safety Report 6245527-5 (Version None)
Quarter: 2009Q2

REPORT INFORMATION
  Report Type: 
  Country: None (occurrence: None)
  Receive Date: 20090619
  Receipt Date: 20090407
  Transmission Date: 20091009
  Serious: No
  Sender: FDA-Public Use
  Company Number: ALL1-2009-00928

PATIENT
  Sex: Female

DRUGS (5)
  1. VYVANSE [Suspect]
     Dosage: ORAL
     Route: 048
     Dates: start: 20080901, end: 20090301
  2. RESTORIL (CHLORMEZANONE) [Concomitant]
  3. TRILEPTAL [Concomitant]
  4. OXYBUTRIN [Concomitant]
  5. IMIPRAMINE [Concomitant]

REACTIONS (3)
  - DYSPNOEA [None]
  - ELECTROCARDIOGRAM ABNORMAL [None]
  - TACHYCARDIA [None]
